FAERS Safety Report 17005353 (Version 1)
Quarter: 2019Q4

REPORT INFORMATION
  Report Type: Spontaneous
  Country: US (occurrence: US)
  Receive Date: 20191106
  Receipt Date: 20191106
  Transmission Date: 20200122
  Serious: Yes (Other)
  Sender: FDA-Public Use
  Company Number: None

PATIENT
  Age: 51 Year
  Sex: Female
  Weight: 50.8 kg

DRUGS (2)
  1. EMGALITY [Suspect]
     Active Substance: GALCANEZUMAB-GNLM
     Indication: MIGRAINE
     Route: 058
     Dates: start: 20191029, end: 20191106
  2. EMGALITY [Concomitant]
     Active Substance: GALCANEZUMAB-GNLM
     Dates: start: 20191029, end: 20191106

REACTIONS (5)
  - Rash pruritic [None]
  - Urticaria [None]
  - Rash erythematous [None]
  - Injection site reaction [None]
  - Injection site rash [None]

NARRATIVE: CASE EVENT DATE: 20191105
